FAERS Safety Report 5361009-7 (Version None)
Quarter: 2007Q2

REPORT INFORMATION
  Report Type: 
  Country: None (occurrence: None)
  Receive Date: 20070618
  Receipt Date: 20070606
  Transmission Date: 20071010
  Serious: Yes (Life-Threatening, Hospitalization)
  Sender: FDA-Public Use
  Company Number: DE-PFIZER INC-2007046711

PATIENT
  Sex: Female
  Weight: 54 kg

DRUGS (4)
  1. ZYVOXID TABLET [Suspect]
     Indication: URINARY TRACT INFECTION
     Dosage: DAILY DOSE:1400MG
     Route: 048
     Dates: start: 20070516, end: 20070531
  2. PROGRAF [Concomitant]
     Route: 048
  3. COTRIM [Concomitant]
  4. MYFORTIC [Concomitant]
     Route: 048
     Dates: start: 20070301

REACTIONS (5)
  - EPISTAXIS [None]
  - HAEMATOMA [None]
  - HAEMOLYTIC ANAEMIA [None]
  - HAEMOLYTIC URAEMIC SYNDROME [None]
  - THROMBOCYTOPENIA [None]
